FAERS Safety Report 9068546 (Version 1)
Quarter: 2013Q1

REPORT INFORMATION
  Report Type: Spontaneous
  Country: US (occurrence: None)
  Receive Date: 20130212
  Receipt Date: 20130212
  Transmission Date: 20140127
  Serious: No
  Sender: FDA-Public Use
  Company Number: None

PATIENT
  Age: 15 Year
  Sex: Male

DRUGS (1)
  1. NORDITROPIN [Suspect]
     Indication: DWARFISM
     Dosage: 2 MG DAILY SQ
     Route: 058
     Dates: start: 20130118

REACTIONS (1)
  - Urticaria [None]
